FAERS Safety Report 6497253-5 (Version None)
Quarter: 2009Q4

REPORT INFORMATION
  Report Type: 
  Country: None (occurrence: None)
  Receive Date: 20091215
  Receipt Date: 20090712
  Transmission Date: 20100525
  Serious: No
  Sender: FDA-Public Use
  Company Number: A0798314A

PATIENT
  Age: 63 Year
  Sex: Male

DRUGS (1)
  1. AVODART [Suspect]
     Indication: NOCTURIA
     Dosage: .5MG PER DAY
     Route: 048

REACTIONS (4)
  - EJACULATION DISORDER [None]
  - ERECTILE DYSFUNCTION [None]
  - LIBIDO DECREASED [None]
  - SEMEN VOLUME DECREASED [None]
